FAERS Safety Report 5907231-X (Version None)
Quarter: 2008Q4

REPORT INFORMATION
  Report Type: 
  Country: None (occurrence: None)
  Receive Date: 20081003
  Receipt Date: 20080918
  Transmission Date: 20090506
  Serious: Yes (Other)
  Sender: FDA-Public Use
  Company Number: US-AMGEN-KDL308750

PATIENT
  Sex: Female

DRUGS (1)
  1. ENBREL [Suspect]
     Indication: JUVENILE ARTHRITIS
     Route: 058

REACTIONS (9)
  - DYSPNOEA EXERTIONAL [None]
  - FURUNCLE [None]
  - JAW DISORDER [None]
  - NASAL SEPTUM DEVIATION [None]
  - NASOPHARYNGITIS [None]
  - OVARIAN CYST [None]
  - RASH PUSTULAR [None]
  - SINUSITIS [None]
  - STAPHYLOCOCCAL INFECTION [None]
